FAERS Safety Report 5761539-X (Version None)
Quarter: 2008Q2

REPORT INFORMATION
  Report Type: 
  Country: None (occurrence: None)
  Receive Date: 20080606
  Receipt Date: 20080530
  Transmission Date: 20081010
  Serious: Yes (Death, Hospitalization)
  Sender: FDA-Public Use
  Company Number: US-BAXTER-2008BH003081

PATIENT
  Age: 68 Year
  Sex: Male

DRUGS (2)
  1. HEPARIN SODIUM INJECTION [Suspect]
     Indication: THROMBOSIS PROPHYLAXIS
     Dosage: DOSE UNIT:UNKNOWN
     Route: 042
     Dates: start: 20040101, end: 20080201
  2. PREDNISONE TAB [Concomitant]
     Indication: PULMONARY FIBROSIS
     Dosage: DOSE UNIT:UNKNOWN
     Route: 065

REACTIONS (10)
  - ASTHENIA [None]
  - CARDIO-RESPIRATORY ARREST [None]
  - DYSPHAGIA [None]
  - FATIGUE [None]
  - HEADACHE [None]
  - HEART RATE INCREASED [None]
  - INJECTION SITE PAIN [None]
  - NAUSEA [None]
  - REGURGITATION [None]
  - VOMITING [None]
